FAERS Safety Report 8054489-X (Version None)
Quarter: 2012Q1

REPORT INFORMATION
  Report Type: 
  Country: None (occurrence: None)
  Receive Date: 20120118
  Receipt Date: 20120116
  Transmission Date: 20120608
  Serious: Yes (Other)
  Sender: FDA-Public Use
  Company Number: CN-MERCK-1201CHN00152

PATIENT
  Age: 4 Year
  Sex: Male

DRUGS (3)
  1. SINGULAIR [Suspect]
     Indication: COUGH
     Route: 048
     Dates: start: 20110901, end: 20110901
  2. [COMPOSITION UNSPECIFIED] [Concomitant]
     Route: 055
     Dates: start: 20110901
  3. SINGULAIR [Suspect]
     Indication: NASOPHARYNGITIS
     Route: 048
     Dates: start: 20110901, end: 20110901

REACTIONS (2)
  - EPILEPSY [None]
  - OFF LABEL USE [None]
